FAERS Safety Report 10629418 (Version 1)
Quarter: 2014Q4

REPORT INFORMATION
  Report Type: Spontaneous
  Country: US (occurrence: US)
  Receive Date: 20141205
  Receipt Date: 20141205
  Transmission Date: 20150529
  Serious: No
  Sender: FDA-Public Use
  Company Number: US-BRISTOL-MYERS SQUIBB COMPANY-21148291

PATIENT
  Sex: Male

DRUGS (2)
  1. JANUVIA [Suspect]
     Active Substance: SITAGLIPTIN PHOSPHATE
  2. METFORMIN HCL TABS [Suspect]
     Active Substance: METFORMIN HYDROCHLORIDE
     Dosage: UNK DATE DOSE REDUCED TO 1000MG  1/2 TABLET(BID)

REACTIONS (1)
  - Blood glucose decreased [Unknown]
